FAERS Safety Report 6060696-8 (Version None)
Quarter: 2009Q1

REPORT INFORMATION
  Report Type: 
  Country: None (occurrence: None)
  Receive Date: 20090202
  Receipt Date: 20090121
  Transmission Date: 20090719
  Serious: Yes (Other)
  Sender: FDA-Public Use
  Company Number: US-PFIZER INC-2009158311

PATIENT
  Sex: Female
  Weight: 138.34 kg

DRUGS (16)
  1. DEPO-PROVERA [Suspect]
     Indication: OFF LABEL USE
     Dosage: 150 MG/ML, UNK
     Route: 030
     Dates: start: 20060701
  2. DEPO-PROVERA [Suspect]
     Indication: ENDOMETRIOSIS
  3. CELECOXIB [Concomitant]
     Dosage: 200 MG, 1X/DAY
  4. GABAPENTIN [Concomitant]
     Dosage: 600 MG, 1X/DAY
  5. SYNTHROID [Concomitant]
     Dosage: 137 UG, 1X/DAY
  6. PREVACID [Concomitant]
     Dosage: 300 MG, 1X/DAY
  7. AMBIEN [Concomitant]
     Dosage: UNK
  8. SKELAXIN [Concomitant]
     Dosage: 800 MG, 2X/DAY
  9. LIDODERM [Concomitant]
     Dosage: UNK
  10. ULTRAM [Concomitant]
     Dosage: UNK
  11. DESVENLAFAXINE [Concomitant]
     Dosage: 100 MG, 1X/DAY
  12. ALPRAZOLAM [Concomitant]
     Dosage: 0.5 MG, 3X/DAY
  13. CALCIUM [Concomitant]
     Dosage: UNK
  14. VITAMIN B-12 [Concomitant]
     Dosage: UNK
  15. VITAMIN B COMPLEX CAP [Concomitant]
     Dosage: UNK
  16. ASCORBIC ACID [Concomitant]
     Dosage: UNK

REACTIONS (4)
  - ACNE [None]
  - BONE DENSITY DECREASED [None]
  - DRUG DISPENSING ERROR [None]
  - MENTAL DISORDER [None]
